FAERS Safety Report 4437976-2 (Version None)
Quarter: 2004Q3

REPORT INFORMATION
  Report Type: 
  Country: None (occurrence: None)
  Receive Date: 20040831
  Receipt Date: 20040825
  Transmission Date: 20050211
  Serious: Yes (Hospitalization)
  Sender: FDA-Public Use
  Company Number: US-BRISTOL-MYERS SQUIBB COMPANY-12685350

PATIENT
  Age: 35 Year
  Sex: Male

DRUGS (4)
  1. EFAVIRENZ [Suspect]
     Indication: HIV INFECTION
     Dosage: STOPPED IN MAY-2002, THEN RESTARTED
     Dates: start: 20000601
  2. STAVUDINE [Suspect]
     Indication: HIV INFECTION
     Dosage: STOPPED IN MAY-2002, THEN RESTARTED
     Dates: start: 20000601
  3. RITONAVIR [Suspect]
     Indication: HIV INFECTION
     Dosage: STOPPED IN MAY-2002, THEN RESTARTED
     Dates: start: 20000601
  4. SAQUINAVIR [Suspect]
     Indication: HIV INFECTION
     Dosage: STOPPED IN MAY-2002, THEN RESTARTED
     Dates: start: 20000601

REACTIONS (4)
  - DEPRESSION [None]
  - DIARRHOEA [None]
  - MENINGITIS ASEPTIC [None]
  - RASH MACULO-PAPULAR [None]
